FAERS Safety Report 4636835-X (Version None)
Quarter: 2005Q2

REPORT INFORMATION
  Report Type: 
  Country: None (occurrence: None)
  Receive Date: 20050414
  Receipt Date: 20050401
  Transmission Date: 20051028
  Serious: Yes (Hospitalization)
  Sender: FDA-Public Use
  Company Number: 200502724

PATIENT

DRUGS (2)
  1. ALESION (EPINASTINE) [Suspect]
     Indication: RHINITIS
     Dosage: 20 MG QD PO
     Route: 048
     Dates: start: 20050322, end: 20050322
  2. GRIMAC [Suspect]
     Indication: DRUG USE FOR UNKNOWN INDICATION

REACTIONS (1)
  - ANAPHYLACTIC SHOCK [None]
